FAERS Safety Report 10405297 (Version 1)
Quarter: 2014Q3

REPORT INFORMATION
  Report Type: Spontaneous
  Country: US (occurrence: None)
  Receive Date: 20140821
  Receipt Date: 20140821
  Transmission Date: 20150326
  Serious: Yes (Hospitalization)
  Sender: FDA-Public Use
  Company Number: None

PATIENT
  Age: 68 Year
  Sex: Male
  Weight: 73.6 kg

DRUGS (1)
  1. BUPROPION [Suspect]
     Active Substance: BUPROPION
     Indication: SCHIZOAFFECTIVE DISORDER
     Route: 048
     Dates: start: 20130103, end: 20131022

REACTIONS (5)
  - Clang associations [None]
  - Libido increased [None]
  - Psychotic disorder [None]
  - Disorientation [None]
  - Pressure of speech [None]
